FAERS Safety Report 9248291 (Version 3)
Quarter: 2013Q3

REPORT INFORMATION
  Report Type: Spontaneous
  Country: US (occurrence: US)
  Receive Date: 20130423
  Receipt Date: 20130709
  Transmission Date: 20140515
  Serious: Yes (Hospitalization, Other)
  Sender: FDA-Public Use
  Company Number: US-009507513-1304USA009238

PATIENT
  Sex: Female
  Weight: 59.86 kg

DRUGS (6)
  1. FOSAMAX [Suspect]
     Indication: OSTEOPOROSIS
     Dosage: 10 MG, QD
     Route: 048
     Dates: start: 19990928
  2. FOSAMAX [Suspect]
     Dosage: 70 MG, UNK
     Route: 048
     Dates: start: 20011224, end: 20060128
  3. FOSAMAX PLUS D [Suspect]
     Indication: OSTEOPOROSIS
     Dosage: 70/2800
     Route: 048
     Dates: start: 20060703, end: 20080323
  4. ACTONEL [Suspect]
     Indication: OSTEOPOROSIS
     Dosage: 150 MG, UNK
     Route: 048
     Dates: start: 20080620, end: 20110609
  5. L-THYROXIN [Concomitant]
     Indication: GOITRE
     Dosage: UNK
     Dates: start: 19990928
  6. ASPIRIN [Concomitant]
     Dosage: 81 MG, UNK

REACTIONS (15)
  - Femur fracture [Unknown]
  - Intramedullary rod insertion [Unknown]
  - Thyroid nodule removal [Unknown]
  - Hysterectomy [Unknown]
  - Thyroidectomy [Unknown]
  - Cholecystectomy [Unknown]
  - Knee operation [Unknown]
  - Low turnover osteopathy [Unknown]
  - Hypothyroidism [Unknown]
  - Blood cholesterol increased [Unknown]
  - Herpes zoster [Unknown]
  - Arthralgia [Unknown]
  - Joint swelling [Unknown]
  - Arthralgia [Unknown]
  - Vertigo [Unknown]
